FAERS Safety Report 7318513-1 (Version None)
Quarter: 2011Q1

REPORT INFORMATION
  Report Type: 
  Country: None (occurrence: None)
  Receive Date: 20110228
  Receipt Date: 20110215
  Transmission Date: 20110831
  Serious: Yes (Other)
  Sender: FDA-Public Use
  Company Number: US-PFIZER INC-2010152165

PATIENT
  Sex: Female
  Weight: 78 kg

DRUGS (3)
  1. PROTONIX [Suspect]
     Indication: PEPTIC ULCER
     Dosage: 40 MG, 1X/DAY
     Route: 048
     Dates: start: 20100101, end: 20100920
  2. AVALIDE [Concomitant]
  3. ATENOLOL [Concomitant]

REACTIONS (1)
  - STEVENS-JOHNSON SYNDROME [None]
